FAERS Safety Report 16704631 (Version 1)
Quarter: 2019Q3

REPORT INFORMATION
  Report Type: Spontaneous
  Country: FR (occurrence: FR)
  Receive Date: 20190814
  Receipt Date: 20190814
  Transmission Date: 20191004
  Serious: Yes (Congenital Anomaly)
  Sender: FDA-Public Use
  Company Number: FR-009507513-1908FRA001898

PATIENT

DRUGS (4)
  1. CELESTENE (BETAMETHASONE) [Suspect]
     Active Substance: BETAMETHASONE
     Indication: SYSTEMIC LUPUS ERYTHEMATOSUS
     Dosage: NOT SPECIFIED (NR)
     Route: 064
     Dates: start: 20190422, end: 20190423
  2. CORTANCYL [Suspect]
     Active Substance: PREDNISONE
     Indication: SYSTEMIC LUPUS ERYTHEMATOSUS
     Dosage: 1 DOSAGE FORM, 1 DAY (QD)
     Route: 064
     Dates: start: 20190403
  3. IMUREL [Suspect]
     Active Substance: AZATHIOPRINE SODIUM
     Indication: SYSTEMIC LUPUS ERYTHEMATOSUS
     Dosage: 100 MILLIGRAM, 1 DAY (QD)
     Route: 064
     Dates: start: 20190403
  4. NOVORAPID [Concomitant]
     Active Substance: INSULIN ASPART
     Dosage: NOT SPECIFIED (NR)
     Route: 064
     Dates: start: 20190411

REACTIONS (2)
  - Hepatomegaly [Not Recovered/Not Resolved]
  - Microcephaly [Not Recovered/Not Resolved]

NARRATIVE: CASE EVENT DATE: 20190426
